FAERS Safety Report 9116220 (Version 4)
Quarter: 2014Q3

REPORT INFORMATION
  Report Type: Report from Study
  Country: US (occurrence: US)
  Receive Date: 20130225
  Receipt Date: 20140813
  Transmission Date: 20150326
  Serious: Yes (Other)
  Sender: FDA-Public Use
  Company Number: US-VERTEX PHARMACEUTICALS INC.-2013-001721

PATIENT
  Age: 8 Year
  Sex: Male

DRUGS (1)
  1. IVACAFTOR [Suspect]
     Active Substance: IVACAFTOR
     Indication: CYSTIC FIBROSIS
     Dosage: 150 MG, BID
     Route: 048
     Dates: start: 20120317

REACTIONS (7)
  - Sinusitis [Unknown]
  - Haemorrhoids [Unknown]
  - Headache [Recovered/Resolved]
  - Staphylococcal infection [Unknown]
  - Rash [Unknown]
  - Vomiting [Recovered/Resolved]
  - Influenza [Recovered/Resolved]

NARRATIVE: CASE EVENT DATE: 201212
